FAERS Safety Report 8356023-3 (Version None)
Quarter: 2012Q2

REPORT INFORMATION
  Report Type: 
  Country: None (occurrence: None)
  Receive Date: 20120514
  Receipt Date: 20120503
  Transmission Date: 20120825
  Serious: Yes (Death)
  Sender: FDA-Public Use
  Company Number: CA-JNJFOC-20120504398

PATIENT
  Sex: Female
  Weight: 56 kg

DRUGS (15)
  1. METHOTREXATE [Concomitant]
     Route: 065
  2. RAN-PANTOPRAZOLE [Concomitant]
     Route: 065
  3. FERROUS SULFATE TAB [Concomitant]
     Route: 065
  4. ASPIRIN [Concomitant]
     Route: 065
  5. APO-CLONIDINE [Concomitant]
     Dosage: 1/2 TABLET TWICE IN A DAY
     Route: 065
  6. APO-LORAZEPAM [Concomitant]
     Dosage: 4 TABLETS A DAY
     Route: 065
  7. ACTONEL [Concomitant]
     Route: 065
  8. CARBOCAL D [Concomitant]
     Dosage: 400/500 MG
     Route: 065
  9. RISPERIDONE [Concomitant]
     Route: 065
  10. NOVO-CITALOPRAM [Concomitant]
     Dosage: 1.5 TABLET
  11. APO-TEMAZEPAM [Concomitant]
     Route: 065
  12. REMICADE [Suspect]
     Indication: RHEUMATOID ARTHRITIS
     Route: 042
     Dates: start: 20010529, end: 20110727
  13. APO-DILTIAZ [Concomitant]
     Route: 065
  14. NOVO-SEMIDE [Concomitant]
     Route: 065
  15. FOLIC ACID [Concomitant]
     Dosage: 1 TABLET 5/7 DAYS
     Route: 065

REACTIONS (1)
  - DEATH [None]
